FAERS Safety Report 7268302-1 (Version None)
Quarter: 2011Q1

REPORT INFORMATION
  Report Type: 
  Country: None (occurrence: None)
  Receive Date: 20110201
  Receipt Date: 20110121
  Transmission Date: 20110831
  Serious: Yes (Disabling, Other)
  Sender: FDA-Public Use
  Company Number: US-MERCK-1003USA03105

PATIENT
  Age: 72 Year
  Sex: Female
  Weight: 47 kg

DRUGS (5)
  1. FOSAMAX [Suspect]
     Indication: OSTEOPOROSIS
     Route: 048
     Dates: start: 19991105, end: 20001201
  2. FOSAMAX [Suspect]
     Route: 048
     Dates: start: 20010501, end: 20020101
  3. FOSAMAX [Suspect]
     Route: 048
     Dates: start: 20060301, end: 20080401
  4. FOSAMAX [Suspect]
     Route: 048
     Dates: start: 20020109, end: 20050601
  5. FOSAMAX [Suspect]
     Route: 048
     Dates: end: 20080101

REACTIONS (46)
  - ADVERSE DRUG REACTION [None]
  - ANXIETY [None]
  - GINGIVITIS [None]
  - ATRIAL SEPTAL DEFECT [None]
  - TOBACCO ABUSE [None]
  - OSTEOARTHRITIS [None]
  - HYPOTENSION [None]
  - HIATUS HERNIA [None]
  - GINGIVAL DISORDER [None]
  - TOOTH ABSCESS [None]
  - FALL [None]
  - EPILEPSY [None]
  - ABSCESS [None]
  - BONE DISORDER [None]
  - HYPOACUSIS [None]
  - TOOTH INFECTION [None]
  - DIARRHOEA [None]
  - INTERMITTENT CLAUDICATION [None]
  - DUPUYTREN'S CONTRACTURE [None]
  - CYST [None]
  - CEREBRAL ARTERIOSCLEROSIS [None]
  - FISTULA DISCHARGE [None]
  - PERIPHERAL SENSORY NEUROPATHY [None]
  - VITAMIN B12 DEFICIENCY [None]
  - HYPERTENSION [None]
  - CERUMEN IMPACTION [None]
  - CATARACT [None]
  - GASTROOESOPHAGEAL REFLUX DISEASE [None]
  - SWELLING [None]
  - PERNICIOUS ANAEMIA [None]
  - HYPOAESTHESIA [None]
  - DENTAL NECROSIS [None]
  - OSTEONECROSIS OF JAW [None]
  - ARTERIOSCLEROSIS [None]
  - GINGIVAL BLEEDING [None]
  - TOOTH DISORDER [None]
  - DYSLIPIDAEMIA [None]
  - PARAESTHESIA [None]
  - PERIODONTITIS [None]
  - IRRITABLE BOWEL SYNDROME [None]
  - ORAL INFECTION [None]
  - IMPAIRED HEALING [None]
  - GINGIVAL ABSCESS [None]
  - TREATMENT NONCOMPLIANCE [None]
  - ORAL DISORDER [None]
  - NOCTURIA [None]
